FAERS Safety Report 9087105 (Version 2)
Quarter: 2013Q1

REPORT INFORMATION
  Report Type: Spontaneous
  Country: DE (occurrence: DE)
  Receive Date: 20130131
  Receipt Date: 20130311
  Transmission Date: 20140127
  Serious: Yes (Hospitalization, Other)
  Sender: FDA-Public Use
  Company Number: DE-PFIZER INC-2013033891

PATIENT
  Age: 44 Year
  Sex: Female

DRUGS (10)
  1. ZELDOX [Suspect]
     Indication: PSYCHOTIC DISORDER
     Dosage: 80 MG, 2X/DAY
     Route: 048
     Dates: start: 2003
  2. LANTUS [Concomitant]
     Dosage: 18 IU, 1X/DAY
  3. METOPROLOL [Concomitant]
     Dosage: UNK, 1X/DAY
  4. OMEP [Concomitant]
     Dosage: 40 MG, 2X/DAY
  5. SPASMEX [Concomitant]
     Dosage: UNK
  6. UDC [Concomitant]
     Dosage: 250 IN THE MORNING, 250 AT NOON, 500 IN THE EVENING
  7. CHLORPROTHIXEN ^NEURAXPHARM^ [Concomitant]
     Dosage: 15 MG, 3X/DAY, 4X/DAY WHEN NEEDED
  8. NOVAMINSULFON ^LICHTENSTEIN^ [Concomitant]
     Dosage: 1000 MG, 1X/DAY, 2X/DAY WHEN NEEDED
  9. MCP [Concomitant]
     Dosage: 10 MG, 1X/DAY, 2X/DAY WHEN NEEDED
  10. ZYBAN [Concomitant]
     Dosage: UNK

REACTIONS (2)
  - Drug-induced liver injury [Unknown]
  - Non-alcoholic steatohepatitis [Unknown]
